FAERS Safety Report 7108137-3 (Version None)
Quarter: 2010Q4

REPORT INFORMATION
  Report Type: 
  Country: None (occurrence: None)
  Receive Date: 20101117
  Receipt Date: 20101109
  Transmission Date: 20110411
  Serious: Yes (Hospitalization, Other)
  Sender: FDA-Public Use
  Company Number: US-AMGEN-QUU381677

PATIENT

DRUGS (3)
  1. ENBREL [Suspect]
     Indication: RHEUMATOID ARTHRITIS
     Dosage: 25 MG, QWK
     Route: 058
     Dates: start: 20040416
  2. ENBREL [Suspect]
     Dates: start: 20040101
  3. METHOTREXATE [Concomitant]

REACTIONS (13)
  - ALOPECIA [None]
  - ANXIETY [None]
  - DYSPNOEA [None]
  - HYPOAESTHESIA [None]
  - IMPAIRED GASTRIC EMPTYING [None]
  - INJECTION SITE PAIN [None]
  - MACULAR DEGENERATION [None]
  - NERVOUSNESS [None]
  - NEURALGIA [None]
  - PAIN [None]
  - PAIN IN EXTREMITY [None]
  - PANIC REACTION [None]
  - SPINAL DISORDER [None]
